FAERS Safety Report 12226270 (Version 1)
Quarter: 2016Q1

REPORT INFORMATION
  Report Type: Report from Study
  Country: TR (occurrence: TR)
  Receive Date: 20160331
  Receipt Date: 20160331
  Transmission Date: 20160526
  Serious: Yes (Other)
  Sender: FDA-Public Use
  Company Number: TR-ROCHE-1733013

PATIENT
  Age: 62 Year
  Sex: Female
  Weight: 73 kg

DRUGS (5)
  1. COBIMETINIB [Suspect]
     Active Substance: COBIMETINIB
     Indication: METASTATIC MALIGNANT MELANOMA
     Dosage: 60 MG/DAY (1X3 TB)
     Route: 048
     Dates: start: 20160302, end: 20160325
  2. TENOFOVIR [Concomitant]
     Active Substance: TENOFOVIR
     Indication: HEPATITIS B
     Dosage: 1X245 MG
     Route: 048
     Dates: start: 20160106
  3. CONTRAMAL [Concomitant]
     Active Substance: TRAMADOL HYDROCHLORIDE
     Indication: PAIN
     Dosage: 2X50 MG
     Route: 048
     Dates: start: 20160212
  4. VEMURAFENIB [Concomitant]
     Active Substance: VEMURAFENIB
     Indication: METASTATIC MALIGNANT MELANOMA
     Dosage: 2X960 MG
     Route: 048
     Dates: start: 20160128, end: 20160325
  5. ETOL FORT [Concomitant]
     Indication: PAIN
     Route: 048
     Dates: start: 20160209, end: 20160212

REACTIONS (1)
  - Acute kidney injury [Unknown]

NARRATIVE: CASE EVENT DATE: 20160325
